FAERS Safety Report 7138462-1 (Version None)
Quarter: 2010Q4

REPORT INFORMATION
  Report Type: 
  Country: None (occurrence: None)
  Receive Date: 20101206
  Receipt Date: 20101124
  Transmission Date: 20110411
  Serious: Yes (Hospitalization, Other)
  Sender: FDA-Public Use
  Company Number: PHHY2010JP69045

PATIENT
  Sex: Male
  Weight: 63 kg

DRUGS (2)
  1. DIOVAN [Suspect]
     Dosage: 80 MG, QD
     Route: 048
     Dates: start: 20090424, end: 20090618
  2. NOVOLIN R [Concomitant]
     Dosage: 20 IU
     Dates: end: 20091015

REACTIONS (2)
  - ACUTE LEUKAEMIA [None]
  - BLOOD PRESSURE DIASTOLIC DECREASED [None]
